FAERS Safety Report 8811529 (Version 1)
Quarter: 2012Q4

REPORT INFORMATION
  Report Type: 
  Country: US (occurrence: None)
  Receive Date: 20120925
  Receipt Date: 20120925
  Transmission Date: 20130627
  Serious: No
  Sender: FDA-Public Use
  Company Number: None

PATIENT
  Age: 65 Year
  Sex: Female

DRUGS (1)
  1. FORTEO [Suspect]
     Dosage: Dose and Route:600 MCG/2.4ML SC

Frequency: ADMINISTER 20MCG VIA SUB-Q INJECTION DAILY USING PEN DEVICE. DISCARD 28 DAYS AFTER FIRST USE. KEEP REFRIGERATED
     Route: 058
     Dates: start: 20120111, end: 20120125

REACTIONS (3)
  - Arthralgia [None]
  - Muscle spasms [None]
  - Muscle spasms [None]
